FAERS Safety Report 9749966 (Version 1)
Quarter: 2013Q4

REPORT INFORMATION
  Report Type: Spontaneous
  Country: JP (occurrence: JP)
  Receive Date: 20131212
  Receipt Date: 20131212
  Transmission Date: 20140711
  Serious: Yes (Hospitalization, Other)
  Sender: FDA-Public Use
  Company Number: JP-ASTRAZENECA-2013SE90273

PATIENT
  Sex: Male

DRUGS (7)
  1. SEROQUEL [Suspect]
     Indication: DELIRIUM
     Dosage: 50 MILLIGRAMS, DAILY, AT BEDTIME
     Route: 048
  2. SEROQUEL [Suspect]
     Indication: DELIRIUM
     Route: 048
  3. SEROQUEL [Suspect]
     Indication: DELIRIUM
     Route: 048
  4. SEROQUEL [Suspect]
     Indication: DELIRIUM
     Route: 048
  5. SEROQUEL [Suspect]
     Indication: DELIRIUM
     Route: 048
  6. SEROQUEL [Suspect]
     Indication: DELIRIUM
     Route: 048
  7. SEROQUEL [Suspect]
     Indication: DELIRIUM
     Route: 048

REACTIONS (7)
  - Delirium [Unknown]
  - Dysstasia [Unknown]
  - Hepatic function abnormal [Unknown]
  - Hyperglycaemia [Unknown]
  - Restlessness [Unknown]
  - Labelled drug-disease interaction medication error [Unknown]
  - Off label use [Unknown]
